FAERS Safety Report 17461394 (Version 1)
Quarter: 2020Q1

REPORT INFORMATION
  Report Type: Spontaneous
  Country: US (occurrence: US)
  Receive Date: 20200213
  Receipt Date: 20200213
  Transmission Date: 20200409
  Serious: Yes (Other)
  Sender: FDA-Public Use
  Company Number: None

PATIENT
  Sex: Female

DRUGS (2)
  1. ORALABS CHAPICE CHERRY SPF 4 LIP BALM [Suspect]
     Active Substance: PADIMATE O\PETROLATUM
     Dates: start: 20200206, end: 20200208
  2. NO DRUG NAME [Concomitant]

REACTIONS (1)
  - Lip blister [None]

NARRATIVE: CASE EVENT DATE: 20200206
